FAERS Safety Report 8575665-3 (Version None)
Quarter: 2012Q3

REPORT INFORMATION
  Report Type: 
  Country: None (occurrence: None)
  Receive Date: 20120807
  Receipt Date: 20120803
  Transmission Date: 20120928
  Serious: Yes (Death, Hospitalization, Other)
  Sender: FDA-Public Use
  Company Number: PHHY2012CO067483

PATIENT
  Sex: Male

DRUGS (5)
  1. SANDOSTATIN LAR [Suspect]
     Indication: ACROMEGALY
     Dosage: 30 MG, UNK
     Route: 042
     Dates: start: 20111227
  2. FUROSEMIDE [Concomitant]
  3. ACETYLSALICYLIC ACID [Concomitant]
  4. ENALAPRIL MALEATE [Concomitant]
  5. LOSARTAN POTASSIUM [Concomitant]

REACTIONS (5)
  - BACK PAIN [None]
  - MYOCARDIAL INFARCTION [None]
  - LIP HAEMORRHAGE [None]
  - FALL [None]
  - LOSS OF CONSCIOUSNESS [None]
